FAERS Safety Report 7739850-2 (Version None)
Quarter: 2011Q3

REPORT INFORMATION
  Report Type: 
  Country: None (occurrence: None)
  Receive Date: 20110909
  Receipt Date: 20110831
  Transmission Date: 20111222
  Serious: Yes (Other)
  Sender: FDA-Public Use
  Company Number: PHHY2011JP78940

PATIENT
  Age: 40 Year
  Sex: Female

DRUGS (2)
  1. METHYLERGOMETRINE MALEATE [Suspect]
     Route: 042
  2. METHYLERGOMETRINE MALEATE [Suspect]
     Indication: CARDIAC STRESS TEST
     Route: 022

REACTIONS (4)
  - CHEST PAIN [None]
  - SCAN MYOCARDIAL PERFUSION ABNORMAL [None]
  - MYOCARDIAL ISCHAEMIA [None]
  - ARTERIOSPASM CORONARY [None]
